FAERS Safety Report 4353265-9 (Version None)
Quarter: 2004Q2

REPORT INFORMATION
  Report Type: 
  Country: None (occurrence: None)
  Receive Date: 20040430
  Receipt Date: 20040419
  Transmission Date: 20050107
  Serious: Yes (Hospitalization)
  Sender: FDA-Public Use
  Company Number: 200312794

PATIENT
  Age: 64 Year
  Sex: Female
  Weight: 60.782 kg

DRUGS (8)
  1. BOTOX [Suspect]
     Indication: TORTICOLLIS
     Dosage: 400 UNITS PRN IM
     Route: 030
     Dates: end: 20030521
  2. TRAMADOL HCL [Concomitant]
  3. ORPHENADRINE HYDROCHLORIDE FILM TAB [Concomitant]
  4. CHLORZOXAZONE [Concomitant]
  5. VENLAFAXINE HCL [Concomitant]
  6. SIMVASTATIN [Concomitant]
  7. ZOLPIDEM [Concomitant]
  8. CONJUGATED ESTROGENS [Concomitant]

REACTIONS (10)
  - ANXIETY [None]
  - ASTHENIA [None]
  - CHEST PAIN [None]
  - CORONARY ARTERY ATHEROSCLEROSIS [None]
  - CORONARY ARTERY STENOSIS [None]
  - DYSPHAGIA [None]
  - DYSPHONIA [None]
  - DYSPNOEA [None]
  - LOSS OF CONSCIOUSNESS [None]
  - PNEUMONIA [None]
